FAERS Safety Report 5075734-9 (Version None)
Quarter: 2006Q3

REPORT INFORMATION
  Report Type: 
  Country: None (occurrence: None)
  Receive Date: 20060804
  Receipt Date: 20060727
  Transmission Date: 20061208
  Serious: Yes (Hospitalization)
  Sender: FDA-Public Use
  Company Number: ENTC2006-0216

PATIENT
  Age: 55 Year
  Sex: Male

DRUGS (5)
  1. STALEVO 100 [Suspect]
     Indication: PARKINSON'S DISEASE
     Dosage: 6 TAB/DAY ORAL
     Route: 048
     Dates: start: 20060408
  2. CELANCE [Suspect]
     Indication: PARKINSON'S DISEASE
     Dosage: ORAL
     Route: 048
     Dates: start: 19960615
  3. SINEMET [Suspect]
     Indication: PARKINSON'S DISEASE
     Dosage: 25/100 MG ORAL
     Route: 048
     Dates: start: 20030101
  4. SIFROL [Suspect]
     Indication: PARKINSON'S DISEASE
     Dosage: 2.1 MG (0.7 MG, 3 IN 1 D) ORAL
     Route: 048
     Dates: start: 20060411, end: 20060401
  5. CLOZAPINE [Concomitant]

REACTIONS (7)
  - ABNORMAL BEHAVIOUR [None]
  - AGGRESSION [None]
  - CONDITION AGGRAVATED [None]
  - DIVORCED [None]
  - LIBIDO INCREASED [None]
  - PATHOLOGICAL GAMBLING [None]
  - POLLAKIURIA [None]
